FAERS Safety Report 6190176-0 (Version None)
Quarter: 2009Q2

REPORT INFORMATION
  Report Type: 
  Country: None (occurrence: None)
  Receive Date: 20090427
  Receipt Date: 20080603
  Transmission Date: 20091009
  Serious: Yes (Hospitalization)
  Sender: FDA-Public Use
  Company Number: WAES 0806USA00652

PATIENT
  Age: 42 Month
  Sex: Male

DRUGS (3)
  1. SINGULAIR [Suspect]
     Dosage: 3 TAB/1X/PO
     Route: 048
  2. PREVACID [Suspect]
     Dosage: 4 TAB/1X
  3. CLARITIN [Suspect]
     Dosage: 1 TAB/1X

REACTIONS (3)
  - FATIGUE [None]
  - OVERDOSE [None]
  - SOMNOLENCE [None]
